FAERS Safety Report 5850499-9 (Version None)
Quarter: 2008Q3

REPORT INFORMATION
  Report Type: 
  Country: None (occurrence: None)
  Receive Date: 20080818
  Receipt Date: 20080808
  Transmission Date: 20090109
  Serious: Yes (Hospitalization)
  Sender: FDA-Public Use
  Company Number: CIO08013637

PATIENT
  Age: 58 Year
  Sex: Male
  Weight: 154.2 kg

DRUGS (22)
  1. METAMUCIL-2 [Suspect]
     Indication: CONSTIPATION
     Dosage: UNK DOSE, 1 ONLY FOR 1 DAY, ORAL
     Route: 048
     Dates: start: 20080806, end: 20080806
  2. NEXIUM [Concomitant]
  3. SUCRALFATE [Concomitant]
  4. POTASSIUM CHLORIDE [Concomitant]
  5. METFORMIN HCL [Concomitant]
  6. LASIX [Concomitant]
  7. EFFEXOR [Concomitant]
  8. CLONIDINE [Concomitant]
  9. VERAPAMIL [Concomitant]
  10. IMDUR [Concomitant]
  11. MIRALAX [Concomitant]
  12. VICODIN [Concomitant]
  13. COLACE (DOCUSATE SODIUM) [Concomitant]
  14. ADVAIR (SALMETEROL XINAFOATE, FLUTICASONE PROPIONATE) [Concomitant]
  15. SPIRIVA [Concomitant]
  16. ALBUTEROL [Concomitant]
  17. PREVACID [Concomitant]
  18. METHADONE HCL [Concomitant]
  19. METHOCARBAMOL [Concomitant]
  20. PREDNISONE [Concomitant]
  21. WARFARIN SODIUM [Concomitant]
  22. ZETIA [Concomitant]

REACTIONS (4)
  - ABDOMINAL PAIN [None]
  - INCORRECT DOSE ADMINISTERED [None]
  - INTESTINAL OBSTRUCTION [None]
  - WRONG TECHNIQUE IN DRUG USAGE PROCESS [None]
